FAERS Safety Report 15180624 (Version 2)
Quarter: 2018Q3

REPORT INFORMATION
  Report Type: Spontaneous
  Country: US (occurrence: US)
  Receive Date: 20180723
  Receipt Date: 20180903
  Transmission Date: 20181010
  Serious: No
  Sender: FDA-Public Use
  Company Number: US-JNJFOC-20180712305

PATIENT
  Sex: Female

DRUGS (1)
  1. RISPERIDONE. [Suspect]
     Active Substance: RISPERIDONE
     Indication: SCHIZOPHRENIA
     Dosage: INITIATED 5 TO 6 YEARS BEFORE THE TIME OF THIS REPORT
     Route: 048

REACTIONS (3)
  - Feeling abnormal [Unknown]
  - Delusion [Unknown]
  - Adverse event [Unknown]
